FAERS Safety Report 12155223 (Version 1)
Quarter: 2016Q1

REPORT INFORMATION
  Report Type: Spontaneous
  Country: CL (occurrence: CL)
  Receive Date: 20160307
  Receipt Date: 20160307
  Transmission Date: 20160526
  Serious: Yes (Other)
  Sender: FDA-Public Use
  Company Number: CL-PFIZER INC-2016135235

PATIENT
  Age: 28 Year
  Sex: Female

DRUGS (2)
  1. LIDOCAINE. [Suspect]
     Active Substance: LIDOCAINE
     Dosage: UNK
     Dates: start: 20160226
  2. DEPO-MEDROL [Suspect]
     Active Substance: METHYLPREDNISOLONE ACETATE
     Dosage: UNK
     Dates: start: 20160226

REACTIONS (3)
  - Hypersensitivity [Unknown]
  - Erythema [Unknown]
  - Papule [Unknown]

NARRATIVE: CASE EVENT DATE: 20160226
